FAERS Safety Report 9996018 (Version 3)
Quarter: 2014Q2

REPORT INFORMATION
  Report Type: Spontaneous
  Country: GB (occurrence: GB)
  Receive Date: 20140311
  Receipt Date: 20140407
  Transmission Date: 20141212
  Serious: Yes (Other)
  Sender: FDA-Public Use
  Company Number: GB-SA-2014SA027800

PATIENT
  Age: 87 Year
  Sex: Female

DRUGS (4)
  1. SOLOSTAR [Suspect]
     Indication: DEVICE THERAPY
     Dates: start: 2009
  2. APIDRA SOLOSTAR [Suspect]
     Indication: DIABETES MELLITUS
     Dosage: DOSE: 22 UNITS MORNING, 12 UNITS LUNCH TIME, 20 UNITS TEA TIME
     Route: 058
     Dates: start: 2009
  3. LANTUS [Concomitant]
     Indication: DIABETES MELLITUS
     Dosage: DOSE:14 UNIT(S)
     Route: 058
     Dates: start: 2009
  4. BISOPROLOL [Concomitant]

REACTIONS (1)
  - Haemorrhage [Unknown]
